FAERS Safety Report 24210970 (Version 1)
Quarter: 2024Q3

REPORT INFORMATION
  Report Type: Spontaneous
  Country: DE (occurrence: DE)
  Receive Date: 20240814
  Receipt Date: 20240814
  Transmission Date: 20241016
  Serious: Yes (Life-Threatening, Other)
  Sender: ORGANON
  Company Number: None

PATIENT
  Age: 34 Year
  Sex: Female
  Weight: 53 kg

DRUGS (5)
  1. MIRTAZAPINE [Suspect]
     Active Substance: MIRTAZAPINE
     Indication: Anxiety
     Dosage: 7.5 MILLIGRAM, QD
     Route: 048
     Dates: start: 20221015
  2. MIRTAZAPINE [Suspect]
     Active Substance: MIRTAZAPINE
     Indication: Depressed mood
     Dosage: 7.5 MILLIGRAM, QD
     Route: 048
     Dates: end: 20230524
  3. MIRTAZAPINE [Suspect]
     Active Substance: MIRTAZAPINE
     Indication: Panic attack
  4. MIRTAZAPINE [Suspect]
     Active Substance: MIRTAZAPINE
     Indication: Depression
  5. MIRTAZAPINE [Suspect]
     Active Substance: MIRTAZAPINE
     Indication: Sleep disorder

REACTIONS (27)
  - Suicidal ideation [Not Recovered/Not Resolved]
  - Home care [Unknown]
  - Decreased appetite [Unknown]
  - Diarrhoea [Unknown]
  - Loss of personal independence in daily activities [Unknown]
  - Asthenia [Unknown]
  - Restlessness [Unknown]
  - Withdrawal syndrome [Not Recovered/Not Resolved]
  - Anxiety [Not Recovered/Not Resolved]
  - Nausea [Unknown]
  - Nightmare [Unknown]
  - Weight bearing difficulty [Unknown]
  - Anxiety [Unknown]
  - Impaired work ability [Unknown]
  - Flashback [Unknown]
  - Thinking abnormal [Unknown]
  - Mental disorder [Unknown]
  - Panic attack [Not Recovered/Not Resolved]
  - Psychological trauma [Unknown]
  - Insomnia [Unknown]
  - Rash [Unknown]
  - Mood swings [Not Recovered/Not Resolved]
  - Tinnitus [Unknown]
  - Weight decreased [Unknown]
  - Pruritus [Unknown]
  - Product label issue [Unknown]
  - Product communication issue [Unknown]

NARRATIVE: CASE EVENT DATE: 20221030
